FAERS Safety Report 5035324-0 (Version None)
Quarter: 2006Q2

REPORT INFORMATION
  Report Type: 
  Country: None (occurrence: None)
  Receive Date: 20060519
  Receipt Date: 20060301
  Transmission Date: 20061013
  Serious: No
  Sender: FDA-Public Use
  Company Number: TPA2006A00366

PATIENT
  Sex: Female

DRUGS (2)
  1. ROZEREM [Suspect]
     Dosage: 8 MG, 1/2 TABLET QHS, PER ORAL
     Route: 048
     Dates: start: 20060208
  2. KLONOPIN [Suspect]

REACTIONS (3)
  - DIZZINESS [None]
  - HALLUCINATION [None]
  - INITIAL INSOMNIA [None]
